FAERS Safety Report 23140259 (Version 1)
Quarter: 2023Q4

REPORT INFORMATION
  Report Type: Spontaneous
  Country: US (occurrence: US)
  Receive Date: 20231102
  Receipt Date: 20231102
  Transmission Date: 20240110
  Serious: No
  Sender: FDA-Public Use
  Company Number: US-ABBVIE-5472665

PATIENT
  Sex: Female
  Weight: 54 kg

DRUGS (8)
  1. COMBIGAN [Suspect]
     Active Substance: BRIMONIDINE TARTRATE\TIMOLOL MALEATE
     Indication: Glaucoma
     Dosage: ONE DROP IN EACH EYE, 8AM AND 8PM DAILY
     Route: 047
     Dates: start: 2017, end: 202310
  2. TRETINOIN [Concomitant]
     Active Substance: TRETINOIN
     Indication: Skin disorder
  3. PREMARIN [Concomitant]
     Active Substance: ESTROGENS, CONJUGATED
     Indication: Vulvovaginal dryness
  4. BRIMONIDINE TARTRATE\TIMOLOL MALEATE [Concomitant]
     Active Substance: BRIMONIDINE TARTRATE\TIMOLOL MALEATE
     Indication: Glaucoma
     Dosage: ONE DROP IN EACH EYE, 8AM AND 8PM DAILY
     Dates: start: 202310
  5. IVERMECTIN [Concomitant]
     Active Substance: IVERMECTIN
     Indication: Rosacea
  6. PEPCID AC [Concomitant]
     Active Substance: FAMOTIDINE
     Indication: Gastrooesophageal reflux disease
  7. RIZATRIPTAN [Concomitant]
     Active Substance: RIZATRIPTAN
     Indication: Migraine
     Dosage: TIME INTERVAL: AS NECESSARY
  8. SYSTANE (HYPROMELLOSE 2910 (4000 MPA.S)) [Concomitant]
     Active Substance: HYPROMELLOSE 2910 (4000 MPA.S)
     Indication: Dry eye

REACTIONS (3)
  - Product quality issue [Not Recovered/Not Resolved]
  - Intraocular pressure increased [Recovered/Resolved]
  - Intraocular pressure increased [Recovered/Resolved]

NARRATIVE: CASE EVENT DATE: 20230101
